FAERS Safety Report 15960519 (Version 1)
Quarter: 2019Q1

REPORT INFORMATION
  Report Type: Spontaneous
  Country: US (occurrence: US)
  Receive Date: 20190213
  Receipt Date: 20190213
  Transmission Date: 20190417
  Serious: Yes (Other)
  Sender: FDA-Public Use
  Company Number: None

PATIENT
  Sex: Male
  Weight: 108 kg

DRUGS (1)
  1. FENTANYL TRANSDERMAL SYSTEM [Suspect]
     Active Substance: FENTANYL
     Indication: PAIN MANAGEMENT
     Dosage: ?          OTHER STRENGTH:10.65MG;QUANTITY:15 PATCH(ES);OTHER FREQUENCY:100 MCG/H FENTANYL;?
     Route: 062
     Dates: start: 20190110, end: 20190213

REACTIONS (3)
  - Pain [None]
  - Product substitution issue [None]
  - Product supply issue [None]

NARRATIVE: CASE EVENT DATE: 20190125
